FAERS Safety Report 11556501 (Version 1)
Quarter: 2015Q3

REPORT INFORMATION
  Report Type: Spontaneous
  Country: US (occurrence: US)
  Receive Date: 20150925
  Receipt Date: 20150925
  Transmission Date: 20151125
  Serious: No
  Sender: FDA-Public Use
  Company Number: US-WATSON-2014-28463

PATIENT
  Sex: Male
  Weight: 78.91 kg

DRUGS (3)
  1. VENTOLIN [Suspect]
     Active Substance: ALBUTEROL SULFATE
     Indication: RECTAL SPASM
     Dosage: UNK
     Route: 065
     Dates: start: 2014, end: 2014
  2. RECTIV [Suspect]
     Active Substance: NITROGLYCERIN
     Indication: RECTAL SPASM
     Dosage: 1.5 MG, QD
     Route: 065
     Dates: start: 201409
  3. CENTRUM                            /02267801/ [Concomitant]
     Indication: PRODUCT USED FOR UNKNOWN INDICATION
     Dosage: UNK, QD
     Route: 065

REACTIONS (3)
  - Off label use [Recovered/Resolved]
  - Intentional product use issue [Recovered/Resolved]
  - Burning sensation [Unknown]

NARRATIVE: CASE EVENT DATE: 2014
